FAERS Safety Report 7293991 (Version 2)
Quarter: 2014Q1

REPORT INFORMATION
  Report Type: Spontaneous
  Country: US (occurrence: US)
  Receive Date: 20100225
  Receipt Date: 20140128
  Transmission Date: 20141002
  Serious: Yes (Hospitalization)
  Sender: FDA-Public Use
  Company Number: US-JNJFOC-20100208877

PATIENT
  Sex: Female
  Weight: 93.9 kg

DRUGS (5)
  1. DURAGESIC [Suspect]
     Indication: BACK PAIN
     Route: 062
     Dates: start: 2000, end: 201001
  2. DURAGESIC [Suspect]
     Indication: BACK PAIN
     Route: 062
     Dates: start: 201001
  3. MORPHINE [Suspect]
     Indication: PAIN
     Route: 048
     Dates: start: 2009, end: 2009
  4. DILAUDID [Suspect]
     Indication: PAIN
     Route: 048
     Dates: start: 2009, end: 2009
  5. HYDROCODONE [Concomitant]
     Indication: BREAKTHROUGH PAIN
     Dosage: DOSE: 10/500: 2 PILLS
     Route: 048
     Dates: start: 1992

REACTIONS (11)
  - Back disorder [Recovered/Resolved]
  - Blood cholesterol increased [Not Recovered/Not Resolved]
  - Spinal column stenosis [Recovered/Resolved]
  - Breakthrough pain [Not Recovered/Not Resolved]
  - Body height decreased [Not Recovered/Not Resolved]
  - Depression [Not Recovered/Not Resolved]
  - Chills [Recovered/Resolved]
  - Nausea [Recovered/Resolved]
  - Drug ineffective [Not Recovered/Not Resolved]
  - Treatment noncompliance [Recovered/Resolved]
  - Withdrawal syndrome [Unknown]
